FAERS Safety Report 18836564 (Version 5)
Quarter: 2021Q3

REPORT INFORMATION
  Report Type: Spontaneous
  Country: JP (occurrence: JP)
  Receive Date: 20210203
  Receipt Date: 20210701
  Transmission Date: 20211014
  Serious: Yes (Other)
  Sender: FDA-Public Use
  Company Number: JP-PFIZER INC-2021093603

PATIENT
  Age: 54 Year
  Sex: Male
  Weight: 70 kg

DRUGS (4)
  1. BRAFTOVI [Suspect]
     Active Substance: ENCORAFENIB
     Dosage: UNK (REDUCED BY ONE DOSE LEVEL)
     Route: 048
  2. MEKTOVI [Suspect]
     Active Substance: BINIMETINIB
     Indication: MALIGNANT MELANOMA
     Dosage: 3 DF, Q12H
     Route: 048
     Dates: start: 20210104
  3. MEKTOVI [Suspect]
     Active Substance: BINIMETINIB
     Dosage: UNK (REDUCED BY ONE DOSE LEVEL)
     Route: 048
  4. BRAFTOVI [Suspect]
     Active Substance: ENCORAFENIB
     Indication: MALIGNANT MELANOMA
     Dosage: 9 DF, 1X/DAY EVERYDAY
     Route: 048
     Dates: start: 20210104

REACTIONS (2)
  - Serous retinopathy [Recovered/Resolved]
  - Serous retinopathy [Unknown]

NARRATIVE: CASE EVENT DATE: 20210112
